FAERS Safety Report 16548999 (Version 1)
Quarter: 2019Q3

REPORT INFORMATION
  Report Type: Spontaneous
  Country: GB (occurrence: GB)
  Receive Date: 20190709
  Receipt Date: 20190709
  Transmission Date: 20191004
  Serious: Yes (Other)
  Sender: FDA-Public Use
  Company Number: GB-NOVOPROD-670744

PATIENT
  Weight: 84.81 kg

DRUGS (1)
  1. NOVOFEM [Suspect]
     Active Substance: ESTRADIOL HEMIHYDRATE\NORETHINDRONE ACETATE
     Indication: MENOPAUSAL SYMPTOMS
     Dosage: 50 MG
     Route: 048
     Dates: start: 20190518

REACTIONS (1)
  - Adnexa uteri pain [Recovering/Resolving]

NARRATIVE: CASE EVENT DATE: 20190604
